FAERS Safety Report 22267015 (Version 2)
Quarter: 2023Q2

REPORT INFORMATION
  Report Type: Report from Study
  Country: US (occurrence: US)
  Receive Date: 20230428
  Receipt Date: 20230623
  Transmission Date: 20230721
  Serious: Yes (Other)
  Sender: FDA-Public Use
  Company Number: US-AURINIA PHARMACEUTICALS INC.-AUR-003401

PATIENT
  Age: 47 Year
  Sex: Female

DRUGS (1)
  1. LUPKYNIS [Suspect]
     Active Substance: VOCLOSPORIN
     Indication: Lupus nephritis
     Dosage: 7.9 MILLIGRAM, BID
     Route: 048
     Dates: start: 20221201

REACTIONS (3)
  - Pneumonia [Unknown]
  - Bronchitis [Unknown]
  - Lung disorder [Unknown]

NARRATIVE: CASE EVENT DATE: 20230301
